FAERS Safety Report 5584199-X (Version None)
Quarter: 2008Q1

REPORT INFORMATION
  Report Type: 
  Country: None (occurrence: None)
  Receive Date: 20080103
  Receipt Date: 20071221
  Transmission Date: 20080703
  Serious: Yes (Hospitalization)
  Sender: FDA-Public Use
  Company Number: 2007RL000543

PATIENT
  Age: 74 Year
  Sex: Male
  Weight: 108.8633 kg

DRUGS (14)
  1. RYTHMOL SR [Suspect]
     Dosage: 225 MG QD PO ; 325 MG BID PO
     Route: 048
     Dates: start: 20060101, end: 20071101
  2. RYTHMOL SR [Suspect]
     Dosage: 225 MG QD PO ; 325 MG BID PO
     Route: 048
     Dates: start: 20071101
  3. LOVAZA [Suspect]
     Indication: ANTICOAGULANT THERAPY
     Dosage: 2 GM QD PO
     Route: 048
     Dates: start: 20070601, end: 20070101
  4. COUMADIN [Concomitant]
     Indication: DRUG USE FOR UNKNOWN INDICATION
     Dates: end: 20070701
  5. ATENOLOL [Suspect]
     Indication: DRUG USE FOR UNKNOWN INDICATION
  6. MAXZIDE [Concomitant]
  7. POTASSIUM [Concomitant]
  8. ASPIRIN [Concomitant]
  9. COZAAR [Concomitant]
  10. VIAGRA [Concomitant]
  11. VALIUM [Concomitant]
  12. ULTRAM [Concomitant]
  13. CELEXA [Concomitant]
  14. PROTONIX [Concomitant]

REACTIONS (9)
  - CONTUSION [None]
  - DIARRHOEA [None]
  - DIZZINESS [None]
  - DRUG INTERACTION [None]
  - FATIGUE [None]
  - HAEMORRHAGE URINARY TRACT [None]
  - HEADACHE [None]
  - MUSCULAR WEAKNESS [None]
  - OFF LABEL USE [None]
